FAERS Safety Report 5249682-5 (Version None)
Quarter: 2007Q1

REPORT INFORMATION
  Report Type: 
  Country: None (occurrence: None)
  Receive Date: 20070228
  Receipt Date: 20061016
  Transmission Date: 20070707
  Serious: No
  Sender: FDA-Public Use
  Company Number: US-GLAXOSMITHKLINE-A0614717A

PATIENT

DRUGS (16)
  1. IMITREX [Suspect]
     Indication: CLUSTER HEADACHE
     Dosage: 6MG VARIABLE DOSE
     Route: 058
  2. DILAUDID [Concomitant]
  3. PERCOCET [Concomitant]
  4. SOMA [Concomitant]
  5. BENADRYL [Concomitant]
  6. BENTYL [Concomitant]
  7. LOMOTIL [Concomitant]
  8. IMODIUM A-D [Concomitant]
  9. MAALOX FAST BLOCKER [Concomitant]
  10. PROTONIX [Concomitant]
  11. NEXIUM [Concomitant]
  12. LABETALOL HCL [Concomitant]
  13. LEVOXYL [Concomitant]
  14. KLOR-CON [Concomitant]
  15. CARAFATE [Concomitant]
  16. AMBIEN [Concomitant]

REACTIONS (3)
  - INJECTION SITE ERYTHEMA [None]
  - INJECTION SITE HAEMORRHAGE [None]
  - PHARMACEUTICAL PRODUCT COMPLAINT [None]
